FAERS Safety Report 23294237 (Version 1)
Quarter: 2023Q4

REPORT INFORMATION
  Report Type: Spontaneous
  Country: US (occurrence: US)
  Receive Date: 20231213
  Receipt Date: 20231213
  Transmission Date: 20240110
  Serious: No
  Sender: FDA-Public Use
  Company Number: US-VIVUS LLC-2023V1000712

PATIENT
  Sex: Male

DRUGS (1)
  1. PANCREAZE [Suspect]
     Active Substance: PANCRELIPASE AMYLASE\PANCRELIPASE LIPASE\PANCRELIPASE PROTEASE
     Indication: Pancreatic failure
     Dosage: 21,000/54,700/8-3,900 USP
     Route: 048

REACTIONS (3)
  - Daydreaming [Unknown]
  - Abdominal distension [Unknown]
  - Product administration error [Unknown]
